FAERS Safety Report 22142667 (Version 1)
Quarter: 2023Q1

REPORT INFORMATION
  Report Type: Spontaneous
  Country: US (occurrence: US)
  Receive Date: 20230327
  Receipt Date: 20230327
  Transmission Date: 20230417
  Serious: No
  Sender: FDA-Public Use
  Company Number: US-SA-SAC20230323001121

PATIENT
  Age: 29 Year
  Sex: Female
  Weight: 65.31 kg

DRUGS (1)
  1. CEREZYME [Suspect]
     Active Substance: IMIGLUCERASE
     Indication: Multiple sclerosis
     Dosage: 6000 U, QOW
     Route: 042
     Dates: start: 20211026

REACTIONS (2)
  - Weight increased [Unknown]
  - Product use in unapproved indication [Unknown]

NARRATIVE: CASE EVENT DATE: 20211026
